FAERS Safety Report 4930090-9 (Version None)
Quarter: 2006Q1

REPORT INFORMATION
  Report Type: 
  Country: None (occurrence: None)
  Receive Date: 20060228
  Receipt Date: 20060206
  Transmission Date: 20060701
  Serious: Yes (Other)
  Sender: FDA-Public Use
  Company Number: FR200602001182

PATIENT
  Age: 79 Year
  Sex: Female

DRUGS (7)
  1. FORTEO [Suspect]
     Indication: OSTEOPOROSIS
     Dosage: 20 UG, DAILY (1/D), SUBCUTANEOUS
     Route: 058
     Dates: start: 20050623
  2. FORTEO [Concomitant]
  3. NISISCO (HYDROCHLOROTHIAZIDE, VALSARTAN) [Concomitant]
  4. ESOMEPRAZOLE (ESOMEPRAZOLE) [Concomitant]
  5. OROCAL (CALCIUM CARBONATE) [Concomitant]
  6. ROCALTROL [Concomitant]
  7. MORPHINE [Concomitant]

REACTIONS (1)
  - PATHOLOGICAL FRACTURE [None]
